FAERS Safety Report 5253923-8 (Version None)
Quarter: 2007Q1

REPORT INFORMATION
  Report Type: 
  Country: None (occurrence: None)
  Receive Date: 20070228
  Receipt Date: 20070228
  Transmission Date: 20070707
  Serious: No
  Sender: FDA-Public Use
  Company Number: None

PATIENT
  Age: 51 Year
  Sex: Male
  Weight: 86.1834 kg

DRUGS (1)
  1. SEPTOCAINE [Suspect]
     Indication: TOOTH REPAIR
     Dosage: 3.4 ML  3 INJECTIONS  INFERIOR ALVEOL NERVE BLOCK
     Dates: start: 20061025

REACTIONS (2)
  - ANAESTHETIC COMPLICATION [None]
  - NERVE INJURY [None]
